FAERS Safety Report 6879617-0 (Version None)
Quarter: 2010Q3

REPORT INFORMATION
  Report Type: 
  Country: None (occurrence: None)
  Receive Date: 20100727
  Receipt Date: 20100719
  Transmission Date: 20110219
  Serious: Yes (Hospitalization, Other)
  Sender: FDA-Public Use
  Company Number: GB-ABBOTT-10P-167-0641403-00

PATIENT
  Sex: Female

DRUGS (7)
  1. HUMIRA [Suspect]
     Indication: RHEUMATOID ARTHRITIS
     Route: 058
     Dates: start: 20040101
  2. METHOTREXATE [Concomitant]
     Indication: PRODUCT USED FOR UNKNOWN INDICATION
  3. FELODIPINE [Concomitant]
     Indication: PRODUCT USED FOR UNKNOWN INDICATION
  4. ACULAR [Concomitant]
     Indication: PRODUCT USED FOR UNKNOWN INDICATION
  5. MAXITROL [Concomitant]
     Indication: PRODUCT USED FOR UNKNOWN INDICATION
  6. MYDRIACYL [Concomitant]
     Indication: PRODUCT USED FOR UNKNOWN INDICATION
  7. MYDRILATE [Concomitant]
     Indication: PRODUCT USED FOR UNKNOWN INDICATION

REACTIONS (3)
  - EYE SWELLING [None]
  - UVEITIS [None]
  - VISUAL IMPAIRMENT [None]
